FAERS Safety Report 8553404-X (Version None)
Quarter: 2012Q3

REPORT INFORMATION
  Report Type: 
  Country: None (occurrence: None)
  Receive Date: 20120731
  Receipt Date: 20120723
  Transmission Date: 20120928
  Serious: Yes (Death)
  Sender: FDA-Public Use
  Company Number: MX-ROCHE-1089653

PATIENT
  Sex: Male
  Weight: 59 kg

DRUGS (10)
  1. PEGASYS [Suspect]
     Indication: HEPATITIS C
     Route: 058
     Dates: start: 20110816, end: 20120306
  2. RITONAVIR [Concomitant]
     Indication: HIV INFECTION
  3. COPEGUS [Suspect]
     Indication: HIV INFECTION
  4. COPEGUS [Suspect]
     Indication: HEPATITIS C
     Route: 048
     Dates: start: 20110816, end: 20120306
  5. RITONAVIR [Concomitant]
     Indication: HEPATITIS C
  6. TRUVADA [Concomitant]
     Indication: HEPATITIS C
  7. SAQUINAVIR [Concomitant]
     Indication: HEPATITIS C
  8. SAQUINAVIR [Concomitant]
     Indication: HIV INFECTION
  9. TRUVADA [Concomitant]
     Indication: HIV INFECTION
  10. PEGASYS [Suspect]
     Indication: HIV INFECTION

REACTIONS (1)
  - VICTIM OF CRIME [None]
